FAERS Safety Report 15193082 (Version 1)
Quarter: 2018Q3

REPORT INFORMATION
  Report Type: Spontaneous
  Country: US (occurrence: US)
  Receive Date: 20180725
  Receipt Date: 20180725
  Transmission Date: 20181010
  Serious: No
  Sender: FDA-Public Use
  Company Number: US-TEVA-792519ACC

PATIENT
  Sex: Male

DRUGS (2)
  1. ATENOLOL AND CHLORTALIDONE [Suspect]
     Active Substance: ATENOLOL\CHLORTHALIDONE
     Dosage: DOSE STRENGTH:  50/25
     Dates: start: 20170511
  2. ATENOLOL AND CHLORTALIDONE [Suspect]
     Active Substance: ATENOLOL\CHLORTHALIDONE
     Indication: VENTRICULAR FIBRILLATION
     Dosage: DOSE STRENGTH:  50/25
     Dates: start: 2016

REACTIONS (2)
  - Drug ineffective [Unknown]
  - Product quality issue [Unknown]

NARRATIVE: CASE EVENT DATE: 20170526
